FAERS Safety Report 15004787 (Version 1)
Quarter: 2018Q2

REPORT INFORMATION
  Report Type: Spontaneous
  Country: US (occurrence: US)
  Receive Date: 20180524
  Receipt Date: 20180524
  Transmission Date: 20180711
  Serious: No
  Sender: FDA-Public Use
  Company Number: None

PATIENT
  Age: 64 Year
  Sex: Female
  Weight: 112.5 kg

DRUGS (1)
  1. FLUOXETINE HCL [Suspect]
     Active Substance: FLUOXETINE HYDROCHLORIDE
     Indication: DEPRESSION
     Dosage: ?          QUANTITY:2 DF DOSAGE FORM;?
     Route: 048

REACTIONS (3)
  - Product quality issue [None]
  - Headache [None]
  - Somnolence [None]

NARRATIVE: CASE EVENT DATE: 20180516
